FAERS Safety Report 12071005 (Version 2)
Quarter: 2016Q3

REPORT INFORMATION
  Report Type: Report from Study
  Country: SA (occurrence: SA)
  Receive Date: 20160211
  Receipt Date: 20160718
  Transmission Date: 20161109
  Serious: Yes (Other)
  Sender: FDA-Public Use
  Company Number: SA-PFIZER INC-2016083882

PATIENT

DRUGS (3)
  1. ALPROSTADIL. [Suspect]
     Active Substance: ALPROSTADIL
     Indication: VENTRICULAR SEPTAL DEFECT
     Dosage: UNK
     Route: 042
  2. ALPROSTADIL. [Suspect]
     Active Substance: ALPROSTADIL
     Indication: PULMONARY VALVE DISEASE
  3. ALPROSTADIL. [Suspect]
     Active Substance: ALPROSTADIL
     Indication: FALLOT^S TETRALOGY

REACTIONS (1)
  - Hypernatraemia [Unknown]
